FAERS Safety Report 7487517-0 (Version None)
Quarter: 2011Q1

REPORT INFORMATION
  Report Type: 
  Country: None (occurrence: None)
  Receive Date: 20110309
  Receipt Date: 20101117
  Transmission Date: 20110831
  Serious: No
  Sender: FDA-Public Use
  Company Number: 2010SP060868

PATIENT
  Age: 57 Year
  Sex: Male

DRUGS (6)
  1. HALDOL [Concomitant]
  2. SAPHRIS [Suspect]
     Indication: SCHIZOPHRENIA
     Dosage: 5 MG; QAM; SL
     Route: 060
     Dates: start: 20100121, end: 20100223
  3. BENZTROPINE MESYLATE [Concomitant]
  4. ATIVAN [Concomitant]
  5. AMLODIPINE [Concomitant]
  6. IBUPROFEN [Concomitant]

REACTIONS (2)
  - BLOOD GLUCOSE INCREASED [None]
  - UNDERDOSE [None]
